FAERS Safety Report 25110807 (Version 4)
Quarter: 2025Q2

REPORT INFORMATION
  Report Type: Report from Study
  Country: US (occurrence: US)
  Receive Date: 20250324
  Receipt Date: 20250516
  Transmission Date: 20250716
  Serious: No
  Sender: ACADIA PHARMACEUTICALS
  Company Number: US-ACADIA PHARMACEUTICALS INC.-ACA-2025-TRF-003108

PATIENT
  Age: 21 Year
  Sex: Female
  Weight: 56.69 kg

DRUGS (9)
  1. DAYBUE [Suspect]
     Active Substance: TROFINETIDE
     Indication: Rett syndrome
     Dosage: 60 MILLILITER, BID
     Dates: start: 20250310
  2. DAYBUE [Suspect]
     Active Substance: TROFINETIDE
     Route: 065
  3. DAYBUE [Suspect]
     Active Substance: TROFINETIDE
     Dosage: 35 MILLILITER, UNK
     Route: 065
     Dates: end: 20250417
  4. KEPPRA [Concomitant]
     Active Substance: LEVETIRACETAM
  5. TOPAMAX [Concomitant]
     Active Substance: TOPIRAMATE
  6. ZYRTEC [Concomitant]
     Active Substance: CETIRIZINE HYDROCHLORIDE
  7. CLONIDINE [Concomitant]
     Active Substance: CLONIDINE
  8. PEPCID [Concomitant]
     Active Substance: FAMOTIDINE
  9. FLONASE [Concomitant]
     Active Substance: FLUTICASONE PROPIONATE

REACTIONS (3)
  - Flatulence [Not Recovered/Not Resolved]
  - Liver function test increased [Recovering/Resolving]
  - Underdose [Recovered/Resolved]

NARRATIVE: CASE EVENT DATE: 20250317
